FAERS Safety Report 4543522-5 (Version None)
Quarter: 2004Q4

REPORT INFORMATION
  Report Type: 
  Country: None (occurrence: None)
  Receive Date: 20041223
  Receipt Date: 20040908
  Transmission Date: 20050328
  Serious: No
  Sender: FDA-Public Use
  Company Number: US-JNJFOC-20040902675

PATIENT
  Age: 42 Year
  Sex: Female
  Weight: 49.8957 kg

DRUGS (1)
  1. ORTHO EVRA [Suspect]
     Indication: CONTRACEPTION
     Dosage: 1 DOSE (S) 3 IN 4 WEEK TRANSDERMAL
     Route: 062
     Dates: start: 20040501

REACTIONS (4)
  - ABDOMINAL DISTENSION [None]
  - BREAST TENDERNESS [None]
  - METRORRHAGIA [None]
  - PREMENSTRUAL SYNDROME [None]
